FAERS Safety Report 19362524 (Version 1)
Quarter: 2021Q2

REPORT INFORMATION
  Report Type: Other
  Country: US (occurrence: US)
  Receive Date: 20210601
  Receipt Date: 20210601
  Transmission Date: 20210717
  Serious: Yes (Death)
  Sender: FDA-Public Use
  Company Number: US-ROCHE-2840383

PATIENT
  Sex: Male

DRUGS (1)
  1. AVASTIN [Suspect]
     Active Substance: BEVACIZUMAB
     Indication: PROSTATE CANCER
     Dosage: INFUSE 1578MG (16MG/KG) INTRAVENOUSLY EVERY 3 WEEK
     Route: 042

REACTIONS (2)
  - Off label use [Unknown]
  - Death [Fatal]
